FAERS Safety Report 23822971 (Version 1)
Quarter: 2024Q2

REPORT INFORMATION
  Report Type: Spontaneous
  Country: JP (occurrence: JP)
  Receive Date: 20240506
  Receipt Date: 20240506
  Transmission Date: 20240716
  Serious: Yes (Hospitalization, Other)
  Sender: FDA-Public Use
  Company Number: JP-009507513-2405JPN001019

PATIENT
  Age: 56 Year
  Sex: Male

DRUGS (1)
  1. PEMBROLIZUMAB [Suspect]
     Active Substance: PEMBROLIZUMAB
     Indication: Lung adenocarcinoma
     Dosage: 200 MG AT A TIME AS AN INTRAVENOUS DRIP AT 3-WEEK INTERVALS
     Route: 041
     Dates: start: 2020, end: 202012

REACTIONS (4)
  - Tumour pseudoprogression [Recovered/Resolved]
  - Embolism arterial [Recovered/Resolved]
  - Endocarditis noninfective [Recovered/Resolved]
  - Immune-mediated lung disease [Unknown]

NARRATIVE: CASE EVENT DATE: 20210201
